FAERS Safety Report 7895773 (Version 2)
Quarter: 2012Q4

REPORT INFORMATION
  Report Type: 
  Country: JP (occurrence: JP)
  Receive Date: 20110412
  Receipt Date: 20120912
  Transmission Date: 20130627
  Serious: No
  Sender: FDA-Public Use
  Company Number: JP-ELI_LILLY_AND_COMPANY-JP201104001402

PATIENT
  Age: 75 Year
  Sex: Male
  Weight: 49 kg

DRUGS (6)
  1. HUMALOG 50% LISPRO, 50% NPL [Suspect]
     Indication: TYPE 2 DIABETES MELLITUS
     Dosage: UNK
     Route: 058
     Dates: start: 200511, end: 200911
  2. HUMALOG LISPRO [Suspect]
     Indication: TYPE 2 DIABETES MELLITUS
     Dosage: UNK
     Route: 058
     Dates: start: 200511, end: 200911
  3. PREDNISOLONE [Concomitant]
     Indication: POLYMYALGIA RHEUMATICA
     Dosage: 5 mg, UNK
     Route: 048
     Dates: start: 200511
  4. PREDNISOLONE [Concomitant]
     Dosage: 2.5 mg, UNK
     Route: 048
     Dates: start: 200602, end: 200705
  5. FAMOTIDINE [Concomitant]
     Indication: GASTRITIS
  6. FLUTICASONE [Concomitant]
     Indication: ASTHMA

REACTIONS (4)
  - Hyperglycaemia [Recovered/Resolved]
  - Hypoglycaemia [Recovered/Resolved]
  - Anti-insulin antibody positive [Recovering/Resolving]
  - Drug hypersensitivity [Recovering/Resolving]
